FAERS Safety Report 5053821-9 (Version None)
Quarter: 2006Q3

REPORT INFORMATION
  Report Type: 
  Country: None (occurrence: None)
  Receive Date: 20060718
  Receipt Date: 20060713
  Transmission Date: 20061208
  Serious: Yes (Other)
  Sender: FDA-Public Use
  Company Number: US-GLAXOSMITHKLINE-A0612369A

PATIENT
  Sex: Male

DRUGS (1)
  1. WELLBUTRIN [Suspect]
     Indication: SMOKING CESSATION THERAPY
     Route: 048

REACTIONS (6)
  - ANGER [None]
  - CONFUSIONAL STATE [None]
  - INTENTIONAL SELF-INJURY [None]
  - JOB DISSATISFACTION [None]
  - LACERATION [None]
  - PERSONALITY CHANGE [None]
